FAERS Safety Report 24444831 (Version 2)
Quarter: 2024Q4

REPORT INFORMATION
  Report Type: Report from Study
  Country: US (occurrence: US)
  Receive Date: 20241016
  Receipt Date: 20241017
  Transmission Date: 20250114
  Serious: No
  Sender: ROCHE
  Company Number: US-ROCHE-2852754

PATIENT
  Age: 62 Year
  Sex: Female

DRUGS (4)
  1. RITUXAN [Suspect]
     Active Substance: RITUXIMAB
     Indication: Myopathy
     Dosage: 10 MG VIAL, DAY 1 AND  DAY 15? FREQUENCY TEXT:DAY 1 AND  DAY 15
     Route: 042
  2. RITUXAN [Suspect]
     Active Substance: RITUXIMAB
     Indication: Pneumonia
     Dosage: DAY 1 AND  DAY 15? FREQUENCY TEXT:DAY 1 AND  DAY 15
     Route: 042
  3. RITUXAN [Suspect]
     Active Substance: RITUXIMAB
     Indication: Immunosuppression
  4. RITUXAN [Suspect]
     Active Substance: RITUXIMAB
     Indication: Dermatomyositis

REACTIONS (2)
  - Off label use [Unknown]
  - No adverse event [Unknown]
